FAERS Safety Report 14692391 (Version 1)
Quarter: 2018Q1

REPORT INFORMATION
  Report Type: Spontaneous
  Country: DE (occurrence: DE)
  Receive Date: 20180329
  Receipt Date: 20180329
  Transmission Date: 20180509
  Serious: Yes (Other)
  Sender: FDA-Public Use
  Company Number: DE-TEVA-2018-DE-876632

PATIENT

DRUGS (2)
  1. TACROLIMUS. [Suspect]
     Active Substance: TACROLIMUS
     Indication: LIVER TRANSPLANT
     Dosage: UNK UNK, UNKNOWN FREQ.,FORMULATION UNKNOWN
     Route: 065
  2. MYCOPHENOLAT MOFETIL [Suspect]
     Active Substance: MYCOPHENOLATE MOFETIL
     Indication: LIVER TRANSPLANT
     Dosage: UNK, UNKNOWN FREQ.,FORMULATION UNKNOWN
     Route: 065

REACTIONS (2)
  - Atrial fibrillation [Unknown]
  - Laboratory test abnormal [Unknown]
